FAERS Safety Report 11518340 (Version 1)
Quarter: 2015Q3

REPORT INFORMATION
  Report Type: Spontaneous
  Country: US (occurrence: US)
  Receive Date: 20150917
  Receipt Date: 20150917
  Transmission Date: 20151125
  Serious: Yes (Other)
  Sender: FDA-Public Use
  Company Number: US-PFIZER INC-2015309164

PATIENT
  Sex: Female

DRUGS (1)
  1. EFFEXOR XR [Suspect]
     Active Substance: VENLAFAXINE HYDROCHLORIDE
     Dosage: UNK

REACTIONS (9)
  - Bipolar disorder [Unknown]
  - Self injurious behaviour [Unknown]
  - Agitation [Unknown]
  - Menopause [Unknown]
  - Anxiety [Unknown]
  - Aggression [Unknown]
  - Dyslexia [Unknown]
  - Mental disorder [Unknown]
  - Nervousness [Unknown]
